FAERS Safety Report 21658246 (Version 1)
Quarter: 2022Q4

REPORT INFORMATION
  Report Type: Spontaneous
  Country: US (occurrence: None)
  Receive Date: 20221128
  Receipt Date: 20221128
  Transmission Date: 20230113
  Serious: Yes (Death)
  Sender: FDA-Public Use
  Company Number: None

PATIENT
  Age: 57 Year
  Sex: Male

DRUGS (1)
  1. APIXABAN [Suspect]
     Active Substance: APIXABAN

REACTIONS (7)
  - Headache [None]
  - Dyspnoea [None]
  - Asthenia [None]
  - Haemodialysis [None]
  - Anuria [None]
  - Haemorrhagic stroke [None]
  - Mental status changes [None]

NARRATIVE: CASE EVENT DATE: 20220604
